FAERS Safety Report 23351748 (Version 1)
Quarter: 2023Q4

REPORT INFORMATION
  Report Type: Spontaneous
  Country: EG (occurrence: EG)
  Receive Date: 20231229
  Receipt Date: 20231229
  Transmission Date: 20240109
  Serious: Yes (Life-Threatening, Hospitalization, Other)
  Sender: FDA-Public Use
  Company Number: EG-BAXTER-2023BAX039053

PATIENT
  Age: 30 Year
  Sex: Male
  Weight: 60 kg

DRUGS (3)
  1. IFOSFAMIDE [Suspect]
     Active Substance: IFOSFAMIDE
     Indication: Liposarcoma metastatic
     Dosage: 2.44 G, DAY 1,2,3 EVERY 21 DAYS
     Route: 042
  2. DOXORUBICIN HYDROCHLORIDE [Suspect]
     Active Substance: DOXORUBICIN HYDROCHLORIDE
     Indication: Liposarcoma metastatic
     Dosage: 81 MG, DAY 1 ONLY EVERY 21 DAYS
     Route: 042
  3. MESNA [Suspect]
     Active Substance: MESNA
     Indication: Liposarcoma metastatic
     Dosage: 1.46 G, DAY 1,2,3 EVERY 21 DAYS
     Route: 042
     Dates: start: 20231122

REACTIONS (5)
  - Skin weeping [Unknown]
  - Cellulite [Unknown]
  - Dyspnoea [Not Recovered/Not Resolved]
  - Tachycardia [Not Recovered/Not Resolved]
  - Bronchospasm [Not Recovered/Not Resolved]
